FAERS Safety Report 7529401-X (Version None)
Quarter: 2011Q2

REPORT INFORMATION
  Report Type: 
  Country: None (occurrence: None)
  Receive Date: 20110607
  Receipt Date: 20110602
  Transmission Date: 20111010
  Serious: Yes (Other)
  Sender: FDA-Public Use
  Company Number: US-PFIZER INC-2011120311

PATIENT
  Sex: Female
  Weight: 72.562 kg

DRUGS (3)
  1. METHADONE [Concomitant]
     Dosage: UNK
  2. AMITRIPTYLINE [Concomitant]
     Dosage: UNK
  3. LYRICA [Suspect]
     Indication: FIBROMYALGIA
     Dosage: UNK
     Route: 048
     Dates: start: 20100501

REACTIONS (4)
  - BLISTER [None]
  - SKIN FISSURES [None]
  - DYSSTASIA [None]
  - CONDITION AGGRAVATED [None]
